FAERS Safety Report 9030292 (Version 1)
Quarter: 2013Q1

REPORT INFORMATION
  Report Type: Spontaneous
  Country: SE (occurrence: SE)
  Receive Date: 20130122
  Receipt Date: 20130122
  Transmission Date: 20140127
  Serious: Yes (Hospitalization)
  Sender: FDA-Public Use
  Company Number: SE-ASTRAZENECA-2013SE03788

PATIENT
  Age: 89 Year
  Sex: Male

DRUGS (6)
  1. FELODIPINE [Suspect]
     Route: 048
  2. CITALOPRAM [Concomitant]
  3. LASIX [Concomitant]
  4. SOBRIL [Concomitant]
  5. TROMBYL [Concomitant]
  6. IMDUR [Concomitant]

REACTIONS (2)
  - Bradycardia [Recovered/Resolved]
  - Hypotension [Recovered/Resolved]
